FAERS Safety Report 8461795-3 (Version None)
Quarter: 2012Q2

REPORT INFORMATION
  Report Type: 
  Country: None (occurrence: None)
  Receive Date: 20120625
  Receipt Date: 20120615
  Transmission Date: 20120825
  Serious: Yes (Hospitalization, Other)
  Sender: FDA-Public Use
  Company Number: US-BAYER-2011-105763

PATIENT
  Age: 42 Year
  Sex: Female
  Weight: 119.2 kg

DRUGS (5)
  1. YAZ [Suspect]
     Indication: MENSTRUATION IRREGULAR
     Dosage: UNK
     Route: 048
     Dates: start: 20070822, end: 20071030
  2. YAZ [Suspect]
     Indication: MENORRHAGIA
  3. NEXIUM [Concomitant]
     Indication: GASTROINTESTINAL DISORDER
     Dosage: 40 MG, UNK
  4. CITALOPRAM HYDROBROMIDE [Concomitant]
     Dosage: 20 MG, UNK
  5. CELEXA [Concomitant]
     Indication: DEPRESSION

REACTIONS (12)
  - THROMBOPHLEBITIS SUPERFICIAL [None]
  - ABDOMINAL PAIN [None]
  - ANXIETY [None]
  - DEEP VEIN THROMBOSIS [None]
  - EMOTIONAL DISTRESS [None]
  - CHEST PAIN [None]
  - FEAR [None]
  - PULMONARY EMBOLISM [None]
  - GENERAL PHYSICAL HEALTH DETERIORATION [None]
  - CHOLELITHIASIS [None]
  - ASTHENIA [None]
  - CHOLECYSTITIS CHRONIC [None]
